FAERS Safety Report 6876187-8 (Version None)
Quarter: 2010Q3

REPORT INFORMATION
  Report Type: 
  Country: None (occurrence: None)
  Receive Date: 20100727
  Receipt Date: 20100713
  Transmission Date: 20110219
  Serious: Yes (Hospitalization)
  Sender: FDA-Public Use
  Company Number: A0866639A

PATIENT
  Age: 42 Year
  Sex: Female

DRUGS (2)
  1. AVANDIA [Suspect]
     Dosage: 4MG PER DAY
     Route: 048
  2. INSULIN [Concomitant]

REACTIONS (4)
  - BLINDNESS UNILATERAL [None]
  - DIABETIC RETINOPATHY [None]
  - MYOCARDIAL INFARCTION [None]
  - RENAL FAILURE CHRONIC [None]
